FAERS Safety Report 5098207-6 (Version None)
Quarter: 2006Q3

REPORT INFORMATION
  Report Type: 
  Country: None (occurrence: None)
  Receive Date: 20060906
  Receipt Date: 20060525
  Transmission Date: 20061208
  Serious: No
  Sender: FDA-Public Use
  Company Number: US-GLAXOSMITHKLINE-A0607624A

PATIENT
  Age: 56 Year
  Sex: Female

DRUGS (10)
  1. REQUIP [Suspect]
     Route: 048
     Dates: start: 20060523, end: 20060612
  2. LOVASTATIN [Concomitant]
  3. LANTUS [Concomitant]
  4. CELEBREX [Concomitant]
  5. VICODIN [Concomitant]
  6. GLUCOPHAGE [Concomitant]
  7. WELLBUTRIN [Concomitant]
     Route: 048
  8. REGULAR INSULIN [Concomitant]
  9. MINIPRESS [Concomitant]
  10. ACTOS [Concomitant]

REACTIONS (4)
  - ABASIA [None]
  - MUSCLE SPASMS [None]
  - OEDEMA PERIPHERAL [None]
  - PAIN IN EXTREMITY [None]
